FAERS Safety Report 16986358 (Version 2)
Quarter: 2019Q4

REPORT INFORMATION
  Report Type: Spontaneous
  Country: BR (occurrence: BR)
  Receive Date: 20191101
  Receipt Date: 20191126
  Transmission Date: 20200122
  Serious: Yes (Hospitalization)
  Sender: FDA-Public Use
  Company Number: BR-ELI_LILLY_AND_COMPANY-BR201910010524

PATIENT
  Sex: Female

DRUGS (2)
  1. FORTEO [Suspect]
     Active Substance: TERIPARATIDE
     Dosage: UNK
     Route: 065
  2. FORTEO [Suspect]
     Active Substance: TERIPARATIDE
     Indication: PRODUCT USED FOR UNKNOWN INDICATION
     Dosage: UNK, UNKNOWN
     Route: 065

REACTIONS (19)
  - Hernia [Unknown]
  - Malaise [Unknown]
  - Dizziness [Unknown]
  - Pyrexia [Unknown]
  - Product dose omission [Unknown]
  - Hypersensitivity [Unknown]
  - Swollen tongue [Unknown]
  - Paraesthesia [Unknown]
  - Pain [Unknown]
  - Hypertension [Unknown]
  - Hypoaesthesia oral [Unknown]
  - Cerebrovascular accident [Unknown]
  - Hypoaesthesia [Unknown]
  - Cholelithiasis [Unknown]
  - Dyspnoea [Unknown]
  - Pharyngeal swelling [Unknown]
  - Tremor [Unknown]
  - Gait disturbance [Unknown]
  - Emotional disorder [Unknown]
